FAERS Safety Report 15811548 (Version 1)
Quarter: 2019Q1

REPORT INFORMATION
  Report Type: Spontaneous
  Country: GB (occurrence: GB)
  Receive Date: 20190111
  Receipt Date: 20190111
  Transmission Date: 20190417
  Serious: Yes (Other)
  Sender: FDA-Public Use
  Company Number: GB-TORRENT-00019902

PATIENT
  Age: 21 Year
  Sex: Female
  Weight: 110 kg

DRUGS (1)
  1. LEVETIRACETAM. [Suspect]
     Active Substance: LEVETIRACETAM
     Indication: IDIOPATHIC GENERALISED EPILEPSY
     Dosage: NIGHT
     Route: 048
     Dates: start: 20181022, end: 20181115

REACTIONS (7)
  - Product substitution issue [Unknown]
  - Abnormal dreams [Recovered/Resolved]
  - Anxiety [Unknown]
  - Psychotic disorder [Recovered/Resolved]
  - Confusional state [Recovered/Resolved]
  - Hallucination [Recovered/Resolved]
  - Nightmare [Recovered/Resolved]
